FAERS Safety Report 6217925-7 (Version None)
Quarter: 2009Q2

REPORT INFORMATION
  Report Type: 
  Country: None (occurrence: None)
  Receive Date: 20090608
  Receipt Date: 20090526
  Transmission Date: 20091009
  Serious: Yes (Congenital Anomaly, Other)
  Sender: FDA-Public Use
  Company Number: US-TEVA-033817

PATIENT
  Sex: Female
  Weight: 61.224 kg

DRUGS (1)
  1. PLAN B TABLET, LEVONORGESTREL, 0.75MG [Suspect]
     Indication: POST COITAL CONTRACEPTION
     Dosage: 1 TABLET, Q12HR
     Route: 048
     Dates: start: 20080831, end: 20080901

REACTIONS (6)
  - ABORTION SPONTANEOUS [None]
  - CONGENITAL ANOMALY [None]
  - DRUG EXPOSURE DURING PREGNANCY [None]
  - DRUG INEFFECTIVE [None]
  - FOETAL HEART RATE ABNORMAL [None]
  - PREGNANCY AFTER POST COITAL CONTRACEPTION [None]
